FAERS Safety Report 7388778-9 (Version None)
Quarter: 2011Q1

REPORT INFORMATION
  Report Type: 
  Country: None (occurrence: None)
  Receive Date: 20110329
  Receipt Date: 20110329
  Transmission Date: 20110831
  Serious: Yes (Other)
  Sender: FDA-Public Use
  Company Number: None

PATIENT
  Sex: Male
  Weight: 130.9 kg

DRUGS (1)
  1. AVALIDE [Suspect]
     Indication: BLOOD PRESSURE MANAGEMENT
     Dosage: 300/25 1 PILL APPOX. 5 YEARS
     Route: 048

REACTIONS (1)
  - PROSTATE CANCER [None]
